FAERS Safety Report 22609177 (Version 1)
Quarter: 2023Q2

REPORT INFORMATION
  Report Type: Spontaneous
  Country: US (occurrence: None)
  Receive Date: 20230615
  Receipt Date: 20230615
  Transmission Date: 20230722
  Serious: Yes (Death)
  Sender: FDA-Public Use
  Company Number: None

PATIENT
  Sex: Male

DRUGS (10)
  1. TACROLIMUS [Suspect]
     Active Substance: TACROLIMUS
     Indication: Lung transplant
     Dosage: FREQUENCY : TWICE A DAY;?
     Route: 048
  2. LEVEMIR [Concomitant]
     Active Substance: INSULIN DETEMIR
  3. MYCOPHENOLATE [Concomitant]
  4. ZENPEP [Concomitant]
  5. PREDNISONE [Concomitant]
  6. TADALAFIL [Concomitant]
  7. TAMSULOSIN [Concomitant]
  8. BACTRIM [Concomitant]
  9. AZITHROMYCIN [Concomitant]
  10. AMLODIPINE [Concomitant]

REACTIONS (1)
  - Death [None]
